FAERS Safety Report 10977717 (Version 1)
Quarter: 2015Q1

REPORT INFORMATION
  Report Type: Spontaneous
  Country: US (occurrence: None)
  Receive Date: 20150330
  Receipt Date: 20150330
  Transmission Date: 20150721
  Serious: Yes (Hospitalization)
  Sender: FDA-Public Use
  Company Number: 2015RD000013

PATIENT
  Age: 10 Year
  Sex: Female

DRUGS (2)
  1. 0.083% ALBUTEROL SULFATE INHALATION SOLUTION [Suspect]
     Active Substance: ALBUTEROL SULFATE
     Indication: WHEEZING
  2. CORTICOSTEROIDS [Concomitant]
     Active Substance: CORTICOSTEROID NOS

REACTIONS (10)
  - Hypokalaemia [None]
  - Paraesthesia [None]
  - Gait disturbance [None]
  - Hypoaesthesia [None]
  - Cough [None]
  - Hyperglycaemia [None]
  - Wheezing [None]
  - Muscular weakness [None]
  - Paralysis [None]
  - Hyperinsulinaemia [None]
